FAERS Safety Report 15932381 (Version 1)
Quarter: 2019Q1

REPORT INFORMATION
  Report Type: Spontaneous
  Country: US (occurrence: US)
  Receive Date: 20190207
  Receipt Date: 20190207
  Transmission Date: 20190417
  Serious: No
  Sender: FDA-Public Use
  Company Number: US-VERTEX PHARMACEUTICALS-2019-000606

PATIENT
  Sex: Female

DRUGS (9)
  1. IPRATROPIUM [Concomitant]
     Active Substance: IPRATROPIUM
  2. APIXABAN [Concomitant]
     Active Substance: APIXABAN
  3. FLUDROCORTISONE [Concomitant]
     Active Substance: FLUDROCORTISONE
     Dosage: UNK, PRN
  4. ALENDRONATE [Concomitant]
     Active Substance: ALENDRONATE SODIUM
  5. PANTOPRAZOLE [Concomitant]
     Active Substance: PANTOPRAZOLE
  6. DILTIAZEM. [Concomitant]
     Active Substance: DILTIAZEM
     Dosage: UNK, PRN
  7. VITAMIN C [Concomitant]
     Active Substance: ASCORBIC ACID
  8. HYPERTONIC SALINE SOLUTION [Concomitant]
     Active Substance: SODIUM CHLORIDE
  9. KALYDECO [Suspect]
     Active Substance: IVACAFTOR
     Indication: CYSTIC FIBROSIS
     Dosage: 150 MG, QD
     Route: 048
     Dates: start: 20180425, end: 20180831

REACTIONS (1)
  - Headache [Unknown]

NARRATIVE: CASE EVENT DATE: 2018
